FAERS Safety Report 9167547 (Version 1)
Quarter: 2013Q1

REPORT INFORMATION
  Report Type: Spontaneous
  Country: GB (occurrence: GB)
  Receive Date: 20130318
  Receipt Date: 20130318
  Transmission Date: 20140127
  Serious: Yes (Other)
  Sender: FDA-Public Use
  Company Number: GB-JNJFOC-20130308562

PATIENT
  Sex: Female

DRUGS (5)
  1. TRAMADOL HYDROCHLORIDE [Suspect]
     Indication: SCIATICA
     Dosage: SEVERE SCIATIC PAIN
     Route: 065
  2. TRAMADOL HYDROCHLORIDE [Suspect]
     Indication: SCIATICA
     Dosage: INDICATION: SEVERE SCIATIC PAIN
     Route: 065
     Dates: end: 2013
  3. TRAMADOL HYDROCHLORIDE [Suspect]
     Indication: NEURALGIA
     Dosage: SEVERE SCIATIC PAIN
     Route: 065
  4. TRAMADOL HYDROCHLORIDE [Suspect]
     Indication: NEURALGIA
     Dosage: INDICATION: SEVERE SCIATIC PAIN
     Route: 065
     Dates: end: 2013
  5. CITALOPRAM [Concomitant]
     Indication: DEPRESSION
     Route: 065

REACTIONS (5)
  - Injury [Unknown]
  - Chest discomfort [Unknown]
  - Withdrawal syndrome [Unknown]
  - Drug dependence [Unknown]
  - Intentional overdose [Unknown]
